FAERS Safety Report 11274777 (Version 1)
Quarter: 2015Q3

REPORT INFORMATION
  Report Type: Spontaneous
  Country: DE (occurrence: DE)
  Receive Date: 20150716
  Receipt Date: 20150716
  Transmission Date: 20151125
  Serious: Yes (Other)
  Sender: FDA-Public Use
  Company Number: DE-ABBVIE-15K-062-1401858-00

PATIENT
  Age: 30 Year
  Sex: Male
  Weight: 95 kg

DRUGS (1)
  1. HUMIRA [Suspect]
     Active Substance: ADALIMUMAB
     Indication: PRODUCT USED FOR UNKNOWN INDICATION
     Route: 058

REACTIONS (4)
  - Addison^s disease [Unknown]
  - Muscular weakness [Unknown]
  - Crohn^s disease [Unknown]
  - Dizziness [Unknown]

NARRATIVE: CASE EVENT DATE: 20150415
